FAERS Safety Report 5927349-5 (Version None)
Quarter: 2008Q4

REPORT INFORMATION
  Report Type: 
  Country: None (occurrence: None)
  Receive Date: 20081021
  Receipt Date: 20081008
  Transmission Date: 20090506
  Serious: Yes (Hospitalization)
  Sender: FDA-Public Use
  Company Number: WAES0810USA01901

PATIENT
  Age: 55 Year
  Sex: Male
  Weight: 73.0291 kg

DRUGS (2)
  1. ISENTRESS [Suspect]
     Indication: HIV INFECTION
     Dosage: 400 MG/BID/PO
     Route: 048
     Dates: start: 20080916
  2. DARUNAVIR [Suspect]
     Indication: HIV INFECTION
     Dosage: 600 MG/BID/PO
     Route: 048
     Dates: start: 20080916

REACTIONS (4)
  - ASTHENIA [None]
  - DIARRHOEA [None]
  - EPISTAXIS [None]
  - HAEMOGLOBIN DECREASED [None]
